FAERS Safety Report 7627633-3 (Version None)
Quarter: 2011Q3

REPORT INFORMATION
  Report Type: 
  Country: None (occurrence: None)
  Receive Date: 20110721
  Receipt Date: 20110718
  Transmission Date: 20111222
  Serious: Yes (Death)
  Sender: FDA-Public Use
  Company Number: PE-PFIZER INC-2011131323

PATIENT
  Age: 79 Year
  Sex: Female

DRUGS (2)
  1. ASPIRIN [Concomitant]
     Dosage: UNK
     Route: 048
  2. XALATAN [Suspect]
     Indication: GLAUCOMA
     Dosage: 0.031 MG, 1X/DAY
     Route: 047

REACTIONS (1)
  - CEREBROVASCULAR ACCIDENT [None]
